FAERS Safety Report 13917316 (Version 1)
Quarter: 2017Q3

REPORT INFORMATION
  Report Type: Spontaneous
  Country: US (occurrence: US)
  Receive Date: 20170829
  Receipt Date: 20170829
  Transmission Date: 20171127
  Serious: No
  Sender: FDA-Public Use
  Company Number: US-GLAXOSMITHKLINE-US2017132071

PATIENT
  Age: 78 Year
  Sex: Male

DRUGS (9)
  1. COUMADIN [Concomitant]
     Active Substance: WARFARIN SODIUM
  2. BREO ELLIPTA [Suspect]
     Active Substance: FLUTICASONE FUROATE\VILANTEROL TRIFENATATE
     Indication: ASTHMA
     Dosage: 1 PUFF(S), QD
     Route: 055
     Dates: start: 20170824
  3. LOSARTAN. [Concomitant]
     Active Substance: LOSARTAN
  4. ALBUTEROL. [Concomitant]
     Active Substance: ALBUTEROL
  5. TAMSULOSIN [Concomitant]
     Active Substance: TAMSULOSIN
  6. TUMERIC [Concomitant]
     Active Substance: HERBALS\TURMERIC
  7. DOXAZOSIN [Concomitant]
     Active Substance: DOXAZOSIN\DOXAZOSIN MESYLATE
  8. LOVASTATIN. [Concomitant]
     Active Substance: LOVASTATIN
  9. METOPROLOL. [Concomitant]
     Active Substance: METOPROLOL

REACTIONS (1)
  - Metamorphopsia [Not Recovered/Not Resolved]

NARRATIVE: CASE EVENT DATE: 20170824
